FAERS Safety Report 9354477 (Version 1)
Quarter: 2013Q2

REPORT INFORMATION
  Report Type: Report from Study
  Country: US (occurrence: US)
  Receive Date: 20130618
  Receipt Date: 20130618
  Transmission Date: 20140414
  Serious: Yes (Other)
  Sender: FDA-Public Use
  Company Number: US-PFIZER INC-2013177137

PATIENT
  Age: 53 Year
  Sex: Female
  Weight: 99.77 kg

DRUGS (14)
  1. CELEBREX [Suspect]
     Indication: RHEUMATOID ARTHRITIS
     Dosage: UNK
  2. METHOTREXATE SODIUM [Suspect]
     Indication: RHEUMATOID ARTHRITIS
     Dosage: UNK
  3. HUMIRA [Suspect]
     Indication: RHEUMATOID ARTHRITIS
     Dosage: 40 MG/0.8 ML PEN, 1 IN 2 WK, INJECTION
     Dates: start: 200803
  4. HUMIRA [Suspect]
     Dosage: UNK
     Dates: start: 200808
  5. NEXIUM [Concomitant]
     Indication: GASTROOESOPHAGEAL REFLUX DISEASE
     Dosage: 40 MG, AT BEDTIME, 5 YEARS
     Route: 048
  6. AMBIEN [Concomitant]
     Indication: SLEEP DISORDER
     Dosage: 10 MG, AT BEDTIME
     Route: 048
     Dates: start: 200806
  7. LOW DOSE ASPIRIN [Concomitant]
     Indication: PROPHYLAXIS
     Dosage: 1 IN 1 D
  8. VITAMINS NOS [Concomitant]
     Indication: VITAMIN SUPPLEMENTATION
     Dosage: UNK
  9. OMEPRAZOLE [Concomitant]
     Indication: GASTROOESOPHAGEAL REFLUX DISEASE
     Dosage: UNK
  10. ZOLPIDEM [Concomitant]
     Indication: SLEEP DISORDER
     Dosage: UNK, AS REQUIRED
  11. OMEGA RED KRILL OIL [Concomitant]
     Indication: SUPPLEMENTATION THERAPY
     Dosage: UNK
  12. XANAX [Concomitant]
     Indication: ANXIETY
     Dosage: AS REQUIRED
  13. VITAMIN D3 [Concomitant]
     Indication: VITAMIN SUPPLEMENTATION
     Dosage: UNK
  14. GABAPENTIN [Concomitant]
     Indication: ARTHRALGIA
     Dosage: UNK

REACTIONS (11)
  - Pneumonia [Recovering/Resolving]
  - Umbilical haemorrhage [Unknown]
  - Umbilical sepsis [Unknown]
  - Rheumatoid arthritis [Unknown]
  - Rheumatoid arthritis [Unknown]
  - Glycosylated haemoglobin increased [Unknown]
  - Upper respiratory tract infection [Recovered/Resolved]
  - Liver function test abnormal [Unknown]
  - Pain [Unknown]
  - Erythema [Unknown]
  - Bronchitis [Unknown]
